FAERS Safety Report 9598752 (Version 1)
Quarter: 2013Q4

REPORT INFORMATION
  Report Type: Spontaneous
  Country: US (occurrence: US)
  Receive Date: 20131004
  Receipt Date: 20131004
  Transmission Date: 20140711
  Serious: No
  Sender: FDA-Public Use
  Company Number: US-AMGEN-USASP2013025494

PATIENT
  Age: 55 Year
  Sex: Female
  Weight: 53.06 kg

DRUGS (7)
  1. ENBREL [Suspect]
     Indication: PRODUCT USED FOR UNKNOWN INDICATION
     Dosage: 50 MG, QWK
     Route: 058
  2. MULTIPLE VITAMINS [Concomitant]
     Dosage: UNK
     Route: 048
  3. HYDROXYCHLOROQUINE [Concomitant]
     Dosage: 200 MG, UNK
     Route: 048
  4. LEVOTHYROXINE [Concomitant]
     Dosage: 88 MUG, UNK
     Route: 048
  5. PREDNISONE [Concomitant]
     Dosage: 5 MG, UNK
     Route: 048
  6. CITRACAL + D                       /01606701/ [Concomitant]
     Dosage: UNK
     Route: 048
  7. MIRTAZAPINE [Concomitant]
     Dosage: 30 MG, UNK
     Route: 048

REACTIONS (1)
  - Injection site erythema [Unknown]
